FAERS Safety Report 9047407 (Version 1)
Quarter: 2013Q1

REPORT INFORMATION
  Report Type: Report from Study
  Country: US (occurrence: US)
  Receive Date: 20130201
  Receipt Date: 20130201
  Transmission Date: 20140127
  Serious: No
  Sender: FDA-Public Use
  Company Number: US-ABBOTT-12P-163-1024847-00

PATIENT
  Age: 73 Year
  Sex: Female

DRUGS (16)
  1. HUMIRA [Suspect]
     Indication: RHEUMATOID ARTHRITIS
  2. CELEBREX [Concomitant]
     Indication: PRODUCT USED FOR UNKNOWN INDICATION
  3. OMEPRAZOLE [Concomitant]
     Indication: GASTROOESOPHAGEAL REFLUX DISEASE
  4. MULTIVITAMIN [Concomitant]
     Indication: PRODUCT USED FOR UNKNOWN INDICATION
  5. FISH OIL [Concomitant]
     Indication: PRODUCT USED FOR UNKNOWN INDICATION
  6. FLAX OIL [Concomitant]
     Indication: PRODUCT USED FOR UNKNOWN INDICATION
  7. FOLIC ACID [Concomitant]
     Indication: PRODUCT USED FOR UNKNOWN INDICATION
  8. ASPIRIN [Concomitant]
     Indication: PRODUCT USED FOR UNKNOWN INDICATION
  9. STOOL SOFTENER [Concomitant]
     Indication: PRODUCT USED FOR UNKNOWN INDICATION
  10. LISINOPRIL [Concomitant]
     Indication: BLOOD PRESSURE INCREASED
     Dosage: DAILY
  11. LISINOPRIL [Concomitant]
     Dosage: DAILY
  12. FUROSEMIDE [Concomitant]
     Dosage: DAILY
  13. GARLIC [Concomitant]
     Indication: BLOOD PRESSURE INCREASED
     Dosage: 2 DAILY
  14. CINNAMON [Concomitant]
     Indication: BLOOD PRESSURE INCREASED
     Dosage: 2 TABS DAILY
  15. METHOTREXATE [Concomitant]
     Dosage: 8 TABLETS WEEKLY
  16. METHOTREXATE [Concomitant]
     Dosage: 3 TABS WEEKLY

REACTIONS (5)
  - Injection site pain [Recovering/Resolving]
  - Injection site haemorrhage [Recovering/Resolving]
  - Hypertension [Recovering/Resolving]
  - Injection site erythema [Recovering/Resolving]
  - Incorrect dose administered [Recovering/Resolving]
